FAERS Safety Report 14338686 (Version 7)
Quarter: 2018Q2

REPORT INFORMATION
  Report Type: Report from Study
  Country: US (occurrence: US)
  Receive Date: 20171229
  Receipt Date: 20180618
  Transmission Date: 20180711
  Serious: Yes (Life-Threatening, Hospitalization, Other)
  Sender: FDA-Public Use
  Company Number: US-GILEAD-2017-0313031

PATIENT
  Age: 48 Year
  Sex: Male
  Weight: 92.97 kg

DRUGS (10)
  1. REMODULIN [Suspect]
     Active Substance: TREPROSTINIL
     Dosage: 40 MG/KG/MIN, UNK
     Route: 058
  2. REMODULIN [Suspect]
     Active Substance: TREPROSTINIL
     Dosage: .035 UG/KG, UNK
     Route: 058
  3. AMBRISENTAN [Suspect]
     Active Substance: AMBRISENTAN
     Indication: PULMONARY HYPERTENSION
     Dosage: 10 MG, QD
     Route: 065
  4. LEVOTHYROXINE. [Suspect]
     Active Substance: LEVOTHYROXINE
     Indication: PRODUCT USED FOR UNKNOWN INDICATION
     Route: 065
  5. REMODULIN [Suspect]
     Active Substance: TREPROSTINIL
     Dosage: 20 MG, UNK
     Route: 058
  6. STRIBILD [Suspect]
     Active Substance: COBICISTAT\ELVITEGRAVIR\EMTRICITABINE\TENOFOVIR DISOPROXIL FUMARATE
     Indication: PRODUCT USED FOR UNKNOWN INDICATION
     Route: 065
  7. REMODULIN [Suspect]
     Active Substance: TREPROSTINIL
     Dosage: 0.040 UG/KG, UNK
     Route: 058
  8. AMBRISENTAN [Suspect]
     Active Substance: AMBRISENTAN
     Indication: HIV INFECTION
  9. REMODULIN [Suspect]
     Active Substance: TREPROSTINIL
     Indication: PULMONARY ARTERIAL HYPERTENSION
     Dosage: .020 UG/KG, UNK
     Route: 058
     Dates: start: 20170629
  10. SULFAMETHOXAZOLE AND TRIMETHOPRIM [Suspect]
     Active Substance: SULFAMETHOXAZOLE\TRIMETHOPRIM
     Indication: PRODUCT USED FOR UNKNOWN INDICATION
     Route: 065

REACTIONS (10)
  - Anal squamous cell carcinoma [Unknown]
  - Pneumonia [Unknown]
  - Respiratory failure [Not Recovered/Not Resolved]
  - Rib fracture [Recovered/Resolved]
  - Pneumothorax [Unknown]
  - Oxygen saturation decreased [Recovered/Resolved]
  - Syncope [Recovered/Resolved]
  - Dyspnoea [Not Recovered/Not Resolved]
  - Head injury [Unknown]
  - Atelectasis [Recovered/Resolved]

NARRATIVE: CASE EVENT DATE: 20171211
